FAERS Safety Report 5639092-0 (Version None)
Quarter: 2008Q1

REPORT INFORMATION
  Report Type: 
  Country: None (occurrence: None)
  Receive Date: 20080226
  Receipt Date: 20080218
  Transmission Date: 20080703
  Serious: Yes (Disabling)
  Sender: FDA-Public Use
  Company Number: PHEH2008US01169

PATIENT
  Age: 75 Year
  Sex: Male
  Weight: 74.376 kg

DRUGS (1)
  1. DIOVAN [Suspect]
     Indication: HYPERTENSION
     Dosage: UNK, UNK
     Route: 048
     Dates: start: 20061201

REACTIONS (3)
  - BODY TEMPERATURE INCREASED [None]
  - BURNING SENSATION [None]
  - HEART RATE INCREASED [None]
